FAERS Safety Report 5315926-4 (Version None)
Quarter: 2007Q2

REPORT INFORMATION
  Report Type: 
  Country: None (occurrence: None)
  Receive Date: 20070503
  Receipt Date: 20070424
  Transmission Date: 20071010
  Serious: Yes (Other)
  Sender: FDA-Public Use
  Company Number: US-GENENTECH-237580

PATIENT
  Sex: Female

DRUGS (7)
  1. BEVACIZUMAB [Suspect]
     Indication: BREAST CANCER
     Dosage: 718 MG, Q2W
     Route: 042
     Dates: start: 20061025
  2. ADRIAMYCIN PFS [Suspect]
     Indication: BREAST CANCER
     Dosage: 104 MG, Q2W
     Dates: start: 20061025
  3. CYTOXAN [Suspect]
     Indication: BREAST CANCER
     Dosage: 1040 MG, Q2W
     Route: 042
     Dates: start: 20061025
  4. ABI-007 [Suspect]
     Indication: BREAST CANCER
     Dosage: 450 MG, UNK
     Dates: start: 20061220
  5. NEULASTA [Suspect]
     Indication: BREAST CANCER
     Dosage: 6 MG, UNK
     Dates: start: 20061025
  6. CETIRIZINE HCL [Concomitant]
     Indication: SEASONAL ALLERGY
     Dosage: 10 MG, UNK
     Dates: start: 20041001
  7. MONTELUKAST SODIUM [Concomitant]
     Indication: SEASONAL ALLERGY
     Dosage: 10 MG, UNK
     Dates: start: 20041001

REACTIONS (1)
  - SINUSITIS FUNGAL [None]
